FAERS Safety Report 22269035 (Version 1)
Quarter: 2023Q2

REPORT INFORMATION
  Report Type: Spontaneous
  Country: RS (occurrence: None)
  Receive Date: 20230501
  Receipt Date: 20230501
  Transmission Date: 20230721
  Serious: Yes (Other)
  Sender: FDA-Public Use
  Company Number: RS-ROCHE-3336251

PATIENT
  Sex: Female

DRUGS (9)
  1. TOCILIZUMAB [Suspect]
     Active Substance: TOCILIZUMAB
     Indication: Rheumatoid arthritis
     Route: 042
     Dates: start: 201503
  2. TOCILIZUMAB [Suspect]
     Active Substance: TOCILIZUMAB
     Indication: Rheumatoid arthritis
     Route: 058
     Dates: start: 202004
  3. RAPTEN DUO [Concomitant]
  4. ZOLOFT [Concomitant]
     Active Substance: SERTRALINE HYDROCHLORIDE
  5. BROMAZEPAM [Concomitant]
     Active Substance: BROMAZEPAM
  6. SYMBICORT [Concomitant]
     Active Substance: BUDESONIDE\FORMOTEROL FUMARATE DIHYDRATE
  7. VENTOLIN [Concomitant]
     Active Substance: ALBUTEROL SULFATE
  8. VIGANTOL [Concomitant]
  9. METHOTREXATE [Concomitant]
     Active Substance: METHOTREXATE

REACTIONS (8)
  - Arrhythmia [Unknown]
  - Fatigue [Unknown]
  - Amenorrhoea [Unknown]
  - Decreased appetite [Unknown]
  - Periodontitis [Unknown]
  - Depression [Unknown]
  - Anxiety [Unknown]
  - Sleep disorder [Unknown]
